FAERS Safety Report 8909751 (Version 1)
Quarter: 2012Q4

REPORT INFORMATION
  Report Type: 
  Country: US (occurrence: US)
  Receive Date: 20121115
  Receipt Date: 20121115
  Transmission Date: 20130627
  Serious: Yes (Hospitalization, Other)
  Sender: FDA-Public Use
  Company Number: US-ELI_LILLY_AND_COMPANY-US201211002394

PATIENT
  Sex: Male

DRUGS (2)
  1. HUMULIN REGULAR [Suspect]
     Indication: DIABETES MELLITUS
     Dosage: 23 u, tid
     Dates: start: 20120916
  2. HUMULIN REGULAR [Suspect]
     Indication: DIABETES MELLITUS
     Dosage: 23 u, tid
     Dates: start: 20120910, end: 20120915

REACTIONS (4)
  - Cardiac failure congestive [Unknown]
  - Weight increased [Recovered/Resolved]
  - Incorrect drug dosage form administered [Recovered/Resolved]
  - Blood glucose increased [Recovered/Resolved]
